FAERS Safety Report 6899921-X (Version None)
Quarter: 2010Q3

REPORT INFORMATION
  Report Type: 
  Country: None (occurrence: None)
  Receive Date: 20100803
  Receipt Date: 20100729
  Transmission Date: 20110219
  Serious: Yes (Hospitalization)
  Sender: FDA-Public Use
  Company Number: DE-BRISTOL-MYERS SQUIBB COMPANY-15139298

PATIENT
  Age: 57 Year
  Sex: Male
  Weight: 62 kg

DRUGS (7)
  1. CISPLATIN [Suspect]
     Indication: NON-SMALL CELL LUNG CANCER
     Dosage: ACTUAL DOSE=642 MG
     Dates: start: 20100211
  2. PEMETREXED DISODIUM [Suspect]
     Indication: NON-SMALL CELL LUNG CANCER
     Dosage: ACTUAL DOSE=4275MG
     Dates: start: 20100211
  3. BEVACIZUMAB [Suspect]
     Indication: NON-SMALL CELL LUNG CANCER
     Dosage: ACTUAL DOSE=2304 MG
     Dates: start: 20100211
  4. IBUPROFEN [Suspect]
     Dosage: ONGOING
  5. LACTULOSE [Concomitant]
     Dates: start: 20100203, end: 20100208
  6. FOLIC ACID [Concomitant]
     Dates: start: 20100205
  7. TARGIN [Concomitant]

REACTIONS (1)
  - HYPERKALAEMIA [None]
